FAERS Safety Report 8421672-0 (Version None)
Quarter: 2012Q2

REPORT INFORMATION
  Report Type: 
  Country: None (occurrence: None)
  Receive Date: 20120608
  Receipt Date: 20120530
  Transmission Date: 20120825
  Serious: Yes (Hospitalization)
  Sender: FDA-Public Use
  Company Number: BR-ASTELLAS-2012US005091

PATIENT
  Weight: 76 kg

DRUGS (12)
  1. CARDIZEM SR 90 [Concomitant]
     Indication: HYPERTENSION
  2. BENICAR HCT [Concomitant]
     Indication: HYPERTENSION
     Dosage: 20 MG, UID/QD
     Route: 048
     Dates: start: 20090101
  3. SPIRIVA [Concomitant]
     Indication: ASTHMA
     Dosage: UNK
     Route: 065
     Dates: start: 20090101
  4. ERLOTINIB HYDROCHLORIDE [Suspect]
     Dosage: 75 MG, UID/QD
     Route: 048
  5. CARDIZEM SR 90 [Concomitant]
     Indication: CORONARY ARTERY DISEASE
     Dosage: 90 MG, UID/QD
     Route: 048
     Dates: start: 20090101
  6. CLONAZEPAM [Concomitant]
     Indication: ANXIETY
     Dosage: 4 DROPS, QHS
     Route: 048
     Dates: start: 20111101
  7. BLINDED OSI-906 [Suspect]
     Indication: LUNG NEOPLASM MALIGNANT
     Dosage: 150 MG, BID
     Route: 048
     Dates: start: 20120503
  8. ERLOTINIB HYDROCHLORIDE [Suspect]
     Indication: LUNG NEOPLASM MALIGNANT
     Dosage: 100 MG, UID/QD
     Route: 048
     Dates: start: 20120515, end: 20120527
  9. LEXAPRO [Concomitant]
     Indication: ANXIETY
     Dosage: 1 DF, UID/QD
     Route: 048
     Dates: start: 20111101
  10. LIPITOR [Concomitant]
     Indication: CORONARY ARTERY DISEASE
     Dosage: 20 MG, UID/QD
     Route: 048
     Dates: start: 20090101
  11. ZETIA [Concomitant]
     Indication: CORONARY ARTERY DISEASE
     Dosage: 10 MG, UID/QD
     Route: 048
     Dates: start: 20090101
  12. SOMALGIN [Concomitant]
     Indication: CORONARY ARTERY DISEASE
     Dosage: 100 MG, QHS
     Route: 048
     Dates: start: 20090101

REACTIONS (2)
  - HYPOTENSION [None]
  - DIARRHOEA [None]
